FAERS Safety Report 6359494-7 (Version None)
Quarter: 2009Q3

REPORT INFORMATION
  Report Type: 
  Country: None (occurrence: None)
  Receive Date: 20090917
  Receipt Date: 20090721
  Transmission Date: 20100115
  Serious: No
  Sender: FDA-Public Use
  Company Number: US-BAYER-200927426NA

PATIENT
  Age: 75 Year
  Sex: Male

DRUGS (2)
  1. NEXAVAR [Suspect]
     Indication: THYROID CANCER
     Dosage: INITIAL DOSING WAS INCREASED AND DECREASED DUE TO SIDE EFFECTS
     Route: 048
     Dates: start: 20090120
  2. NEXAVAR [Suspect]
     Dosage: AS USED: 400-200 MG  UNIT DOSE: 200 MG
     Route: 048
     Dates: start: 20090101

REACTIONS (3)
  - ADVERSE DRUG REACTION [None]
  - BLADDER IRRITATION [None]
  - POLLAKIURIA [None]
